FAERS Safety Report 7384793-X (Version None)
Quarter: 2011Q1

REPORT INFORMATION
  Report Type: 
  Country: None (occurrence: None)
  Receive Date: 20110330
  Receipt Date: 20110315
  Transmission Date: 20110831
  Serious: No
  Sender: FDA-Public Use
  Company Number: US-ROXANE LABORATORIES, INC.-2011-RO-00381RO

PATIENT
  Age: 65 Year
  Sex: Male

DRUGS (5)
  1. TEGRETOL [Concomitant]
     Indication: PARTIAL SEIZURES
  2. KLONOPIN [Concomitant]
     Indication: TREMOR
  3. FLUTICASONE PROPIONATE [Suspect]
     Indication: NASOPHARYNGITIS
     Route: 045
     Dates: start: 20110310, end: 20110314
  4. KEPPRA [Concomitant]
     Indication: PARTIAL SEIZURES
  5. FLUTICASONE PROPIONATE [Suspect]
     Indication: COUGH

REACTIONS (2)
  - AGEUSIA [None]
  - ANOSMIA [None]
